FAERS Safety Report 16394544 (Version 1)
Quarter: 2019Q2

REPORT INFORMATION
  Report Type: Spontaneous
  Country: US (occurrence: US)
  Receive Date: 20190430
  Receipt Date: 20190430
  Transmission Date: 20190711
  Serious: Yes (Hospitalization)
  Sender: FDA-Public Use
  Company Number: None

PATIENT
  Age: 48 Year
  Sex: Female

DRUGS (5)
  1. FOLIC ACID. [Concomitant]
     Active Substance: FOLIC ACID
  2. XELJANZ [Suspect]
     Active Substance: TOFACITINIB CITRATE
     Indication: RHEUMATOID ARTHRITIS
     Route: 048
     Dates: start: 20190302
  3. METHOTREXATE. [Concomitant]
     Active Substance: METHOTREXATE
  4. LEVOTHYROXIN [Concomitant]
     Active Substance: LEVOTHYROXINE
  5. LEUCOVOR CA [Concomitant]

REACTIONS (3)
  - Rheumatoid arthritis [None]
  - Rotator cuff syndrome [None]
  - Vision blurred [None]

NARRATIVE: CASE EVENT DATE: 2019
